FAERS Safety Report 4899456-X (Version None)
Quarter: 2006Q1

REPORT INFORMATION
  Report Type: 
  Country: None (occurrence: None)
  Receive Date: 20060118
  Receipt Date: 20050712
  Transmission Date: 20060701
  Serious: No
  Sender: FDA-Public Use
  Company Number: 2005001307

PATIENT
  Age: 56 Year
  Sex: Male

DRUGS (3)
  1. TARCEVA [Suspect]
     Indication: SQUAMOUS CELL CARCINOMA
     Dosage: 150 MG (QD); 100 MG (QD) : ORAL
     Route: 048
     Dates: start: 20050623, end: 20050712
  2. BLOOD PRESSURE MEDS [Concomitant]
  3. PAIN MEDS [Concomitant]

REACTIONS (2)
  - PALMAR-PLANTAR ERYTHRODYSAESTHESIA SYNDROME [None]
  - RASH [None]
